FAERS Safety Report 16945731 (Version 1)
Quarter: 2019Q4

REPORT INFORMATION
  Report Type: Spontaneous
  Country: US (occurrence: US)
  Receive Date: 20191021
  Receipt Date: 20191021
  Transmission Date: 20200122
  Serious: Yes (Other)
  Sender: FDA-Public Use
  Company Number: None

PATIENT
  Age: 66 Year
  Sex: Male
  Weight: 100.8 kg

DRUGS (14)
  1. XPOVIO [Suspect]
     Active Substance: SELINEXOR
     Indication: PLASMA CELL MYELOMA
     Dosage: ?          OTHER FREQUENCY:ON DAYS 1+3 WEEKLY;?
     Route: 048
     Dates: start: 20191004, end: 20191021
  2. FLOMAX [Concomitant]
     Active Substance: TAMSULOSIN HYDROCHLORIDE
  3. DEXAMETHASONE. [Concomitant]
     Active Substance: DEXAMETHASONE
  4. ZOFRAN [Concomitant]
     Active Substance: ONDANSETRON HYDROCHLORIDE
  5. KYPROLIS [Concomitant]
     Active Substance: CARFILZOMIB
  6. ACYCLOVIR. [Concomitant]
     Active Substance: ACYCLOVIR
  7. FLUOXETINE [Concomitant]
     Active Substance: FLUOXETINE HYDROCHLORIDE
  8. OXYCODONE [Concomitant]
     Active Substance: OXYCODONE
  9. GAS-X [Concomitant]
     Active Substance: DIMETHICONE
  10. OLANZAPINE. [Concomitant]
     Active Substance: OLANZAPINE
  11. RANITIDINE. [Concomitant]
     Active Substance: RANITIDINE
  12. GABAPENTIN. [Concomitant]
     Active Substance: GABAPENTIN
  13. NIFEDIPINE. [Concomitant]
     Active Substance: NIFEDIPINE
  14. CYCLOBENZAPRINE. [Concomitant]
     Active Substance: CYCLOBENZAPRINE

REACTIONS (2)
  - Disease progression [None]
  - Hospice care [None]

NARRATIVE: CASE EVENT DATE: 20191020
